FAERS Safety Report 4407165-6 (Version None)
Quarter: 2004Q3

REPORT INFORMATION
  Report Type: 
  Country: None (occurrence: None)
  Receive Date: 20040721
  Receipt Date: 20040701
  Transmission Date: 20050211
  Serious: Yes (Other)
  Sender: FDA-Public Use
  Company Number: USA040464012

PATIENT
  Age: 71 Year
  Sex: Female
  Weight: 59 kg

DRUGS (8)
  1. FORTEO [Suspect]
     Indication: COMPRESSION FRACTURE
     Dosage: 20 UG/1 DAY
     Dates: start: 20031218
  2. FORTEO [Suspect]
     Indication: OSTEOPOROSIS
     Dosage: 20 UG/1 DAY
     Dates: start: 20031218
  3. CALCIUM WITH VITAMIN D [Concomitant]
  4. LORTAB [Concomitant]
  5. MEVACOR [Concomitant]
  6. ATENOLOL [Concomitant]
  7. LEVOXYL [Concomitant]
  8. SUCRALFATE [Concomitant]

REACTIONS (6)
  - BACK PAIN [None]
  - MULTIPLE MYELOMA [None]
  - MUSCULAR WEAKNESS [None]
  - NAUSEA [None]
  - SPINAL FRACTURE [None]
  - WEIGHT DECREASED [None]
